FAERS Safety Report 9156057 (Version 1)
Quarter: 2013Q1

REPORT INFORMATION
  Report Type: Spontaneous
  Country: MX (occurrence: MX)
  Receive Date: 20130311
  Receipt Date: 20130311
  Transmission Date: 20140127
  Serious: Yes (Hospitalization)
  Sender: FDA-Public Use
  Company Number: PHHY2013MX023217

PATIENT
  Age: 79 Year
  Sex: Female

DRUGS (3)
  1. CO-DIOVAN [Suspect]
     Indication: HYPERTENSION
     Dosage: 1 DF, DAILY
     Route: 048
     Dates: start: 20120531
  2. NORVAS [Concomitant]
     Indication: BLOOD PRESSURE ABNORMAL
     Dosage: 1 DF (AT NIGHT)
     Dates: start: 2006
  3. CALCITRIOL [Concomitant]
     Indication: BONE DISORDER
     Dosage: 1 DF, DAILY
     Dates: start: 2005

REACTIONS (1)
  - Limb discomfort [Recovering/Resolving]
